FAERS Safety Report 17095014 (Version 1)
Quarter: 2019Q4

REPORT INFORMATION
  Report Type: Spontaneous
  Country: FR (occurrence: FR)
  Receive Date: 20191130
  Receipt Date: 20191130
  Transmission Date: 20200122
  Serious: Yes (Hospitalization)
  Sender: FDA-Public Use
  Company Number: FR-ACCORD-162783

PATIENT
  Age: 55 Year
  Sex: Female
  Weight: 54 kg

DRUGS (5)
  1. ARIPIPRAZOLE. [Suspect]
     Active Substance: ARIPIPRAZOLE
     Route: 048
     Dates: start: 20190313, end: 20190313
  2. SERTRALINE [Suspect]
     Active Substance: SERTRALINE HYDROCHLORIDE
     Route: 048
     Dates: start: 20190313, end: 20190313
  3. TERCIAN [Suspect]
     Active Substance: CYAMEMAZINE
     Route: 048
     Dates: start: 20190313, end: 20190313
  4. PRAZEPAM [Suspect]
     Active Substance: PRAZEPAM
     Route: 048
     Dates: start: 20190313, end: 20190313
  5. LORMETAZEPAM [Suspect]
     Active Substance: LORMETAZEPAM
     Route: 048
     Dates: start: 20190313, end: 20190313

REACTIONS (6)
  - Bradycardia [Recovered/Resolved]
  - Encephalopathy [Recovered/Resolved]
  - Hypoxia [Recovered/Resolved]
  - Coma [Recovered/Resolved]
  - Toxicity to various agents [Unknown]
  - Electrocardiogram QT prolonged [Recovered/Resolved]

NARRATIVE: CASE EVENT DATE: 20190313
